FAERS Safety Report 9396115 (Version 1)
Quarter: 2013Q3

REPORT INFORMATION
  Report Type: Spontaneous
  Country: FR (occurrence: FR)
  Receive Date: 20130711
  Receipt Date: 20130711
  Transmission Date: 20140515
  Serious: Yes (Life-Threatening, Hospitalization, Other)
  Sender: FDA-Public Use
  Company Number: FR-ASTRAZENECA-2013SE48984

PATIENT
  Age: 70 Year
  Sex: Female

DRUGS (2)
  1. BRILIQUE [Suspect]
     Indication: ACUTE CORONARY SYNDROME
     Route: 048
     Dates: start: 201306, end: 201306
  2. KARDEGIC [Concomitant]

REACTIONS (3)
  - Cardiac arrest [Unknown]
  - Hepatic haematoma [Recovering/Resolving]
  - Gastrointestinal haemorrhage [Unknown]
